FAERS Safety Report 23134214 (Version 1)
Quarter: 2023Q4

REPORT INFORMATION
  Report Type: Spontaneous
  Country: US (occurrence: None)
  Receive Date: 20231031
  Receipt Date: 20231031
  Transmission Date: 20240109
  Serious: Yes (Other)
  Sender: FDA-Public Use
  Company Number: None

PATIENT
  Age: 83 Year
  Sex: 0

DRUGS (1)
  1. LENVATINIB [Suspect]
     Active Substance: LENVATINIB

REACTIONS (3)
  - Constipation [None]
  - Fatigue [None]
  - Failure to thrive [None]

NARRATIVE: CASE EVENT DATE: 20231031
